FAERS Safety Report 9568952 (Version 1)
Quarter: 2013Q3

REPORT INFORMATION
  Report Type: Spontaneous
  Country: US (occurrence: US)
  Receive Date: 20130930
  Receipt Date: 20130930
  Transmission Date: 20140515
  Serious: No
  Sender: FDA-Public Use
  Company Number: US-AMGEN-USASP2013059323

PATIENT
  Age: 78 Year
  Sex: Female
  Weight: 58.96 kg

DRUGS (15)
  1. ENBREL [Suspect]
     Indication: PRODUCT USED FOR UNKNOWN INDICATION
     Dosage: 50 MG, QWK
     Route: 058
  2. METHOTREXATE [Concomitant]
     Dosage: 2.5 MG, UNK
  3. PREDNISONE [Concomitant]
     Dosage: 5 MG, UNK
  4. LYRICA [Concomitant]
     Dosage: 100 MG, UNK
  5. NAPROXEN [Concomitant]
     Dosage: 500 MG, UNK
  6. METFORMIN [Concomitant]
     Dosage: 500 MG, UNK
  7. LOSARTAN/HCT [Concomitant]
     Dosage: 100-12.5, UNK
  8. FOLIC ACID [Concomitant]
     Dosage: 1 MG, UNK
  9. LEVOTHYROXIN [Concomitant]
     Dosage: 25 MUG, UNK
  10. MULTIPLE VITAMINS [Concomitant]
     Dosage: UNK
  11. CALCIUM [Concomitant]
     Dosage: 600 UNK, UNK
  12. ADVIL PM                           /05810501/ [Concomitant]
     Dosage: 200-25 MG, UNK
  13. FISH OIL [Concomitant]
     Dosage: 1000 MG, UNK
  14. ZETIA [Concomitant]
     Dosage: 10 MG, UNK
  15. TRAMADOL HCL [Concomitant]
     Dosage: 200 MG, UNK

REACTIONS (2)
  - Dyspnoea [Unknown]
  - Weight decreased [Unknown]
